FAERS Safety Report 9105288 (Version 1)
Quarter: 2013Q1

REPORT INFORMATION
  Report Type: Spontaneous
  Country: US (occurrence: US)
  Receive Date: 20130221
  Receipt Date: 20130221
  Transmission Date: 20140127
  Serious: Yes (Hospitalization, Other)
  Sender: FDA-Public Use
  Company Number: PHHY2013US016114

PATIENT
  Age: 59 Year
  Sex: Female

DRUGS (2)
  1. PARACETAMOL [Suspect]
  2. AMITRIPTYLINE [Concomitant]

REACTIONS (7)
  - Suicide attempt [Unknown]
  - Self injurious behaviour [Unknown]
  - Coma [Unknown]
  - Metabolic acidosis [Unknown]
  - Alanine aminotransferase increased [Recovered/Resolved]
  - Aspartate aminotransferase increased [Recovered/Resolved]
  - Intentional overdose [Unknown]
